FAERS Safety Report 5522391-0 (Version None)
Quarter: 2007Q4

REPORT INFORMATION
  Report Type: 
  Country: None (occurrence: None)
  Receive Date: 20071120
  Receipt Date: 20071110
  Transmission Date: 20080405
  Serious: Yes (Hospitalization, Other)
  Sender: FDA-Public Use
  Company Number: US-PFIZER INC-2007095603

PATIENT
  Sex: Female

DRUGS (1)
  1. PHENYTOIN SUSPENSION [Suspect]
     Indication: CONVULSION

REACTIONS (3)
  - BLINDNESS [None]
  - SCAR [None]
  - STEVENS-JOHNSON SYNDROME [None]
